FAERS Safety Report 7914024-0 (Version None)
Quarter: 2011Q4

REPORT INFORMATION
  Report Type: 
  Country: None (occurrence: None)
  Receive Date: 20111115
  Receipt Date: 20111104
  Transmission Date: 20120403
  Serious: Yes (Other)
  Sender: FDA-Public Use
  Company Number: US-BAYER-2011-107406

PATIENT
  Sex: Female

DRUGS (2)
  1. YAZ [Suspect]
     Dosage: UNK
     Dates: start: 20030101, end: 20101201
  2. YASMIN [Suspect]
     Dosage: UNK
     Dates: start: 20030101, end: 20101201

REACTIONS (4)
  - PAIN [None]
  - INJURY [None]
  - DEFORMITY [None]
  - GALLBLADDER DISORDER [None]
